FAERS Safety Report 5169546-5 (Version None)
Quarter: 2006Q4

REPORT INFORMATION
  Report Type: 
  Country: None (occurrence: None)
  Receive Date: 20061204
  Receipt Date: 20061122
  Transmission Date: 20070319
  Serious: Yes (Disabling)
  Sender: FDA-Public Use
  Company Number: HQWYE437107SEP06

PATIENT
  Age: 44 Year
  Sex: Female
  Weight: 64.92 kg

DRUGS (8)
  1. EFFEXOR XR [Suspect]
     Indication: DEPRESSION
     Dosage: 37.5 MG 1X PER 1 DAY, ORAL
     Route: 048
  2. EFFEXOR XR [Suspect]
     Indication: FATIGUE
     Dosage: 37.5 MG 1X PER 1 DAY, ORAL
     Route: 048
  3. PREMARIN [Concomitant]
  4. HYDROCODONE BITARTRATE [Concomitant]
  5. LIDODERM [Concomitant]
  6. FLEXERIL [Concomitant]
  7. MEDROL [Concomitant]
  8. ULTRACET [Concomitant]

REACTIONS (18)
  - ALOPECIA [None]
  - ARTHRALGIA [None]
  - DEPRESSION [None]
  - DRUG DEPENDENCE [None]
  - DRUG WITHDRAWAL SYNDROME [None]
  - FEELING ABNORMAL [None]
  - HEADACHE [None]
  - INSOMNIA [None]
  - LIBIDO DECREASED [None]
  - MIGRAINE [None]
  - MOOD SWINGS [None]
  - MUSCLE SWELLING [None]
  - MYALGIA [None]
  - NAUSEA [None]
  - SLEEP DISORDER [None]
  - UNEVALUABLE EVENT [None]
  - VERTIGO [None]
  - WEIGHT INCREASED [None]
